FAERS Safety Report 6283793-0 (Version None)
Quarter: 2009Q3

REPORT INFORMATION
  Report Type: 
  Country: None (occurrence: None)
  Receive Date: 20090724
  Receipt Date: 20090716
  Transmission Date: 20100115
  Serious: Yes (Other)
  Sender: FDA-Public Use
  Company Number: US-ASTRAZENECA-2009UW20181

PATIENT
  Age: 62 Year
  Sex: Female
  Weight: 90.7 kg

DRUGS (9)
  1. ATACAND [Suspect]
     Dosage: 15 MG THEN 4 MG
     Route: 048
     Dates: start: 20090601
  2. CRESTOR [Concomitant]
     Route: 048
  3. ACTOS [Concomitant]
  4. AMARYL [Concomitant]
  5. TRICOR [Concomitant]
  6. PROTONIX [Concomitant]
  7. CELEXA [Concomitant]
  8. LUNESTA [Concomitant]
  9. ZYRTEC [Concomitant]

REACTIONS (3)
  - INTERVERTEBRAL DISC PROTRUSION [None]
  - PAIN [None]
  - WEIGHT INCREASED [None]
